FAERS Safety Report 20773592 (Version 2)
Quarter: 2022Q2

REPORT INFORMATION
  Report Type: Spontaneous
  Country: BR (occurrence: BR)
  Receive Date: 20220502
  Receipt Date: 20220505
  Transmission Date: 20220721
  Serious: Yes (Other)
  Sender: FDA-Public Use
  Company Number: BR-NOVARTISPH-NVSC2022BR100231

PATIENT
  Sex: Male

DRUGS (2)
  1. TEGRETOL XR [Suspect]
     Active Substance: CARBAMAZEPINE
     Indication: Epilepsy
     Dosage: 1000 MG, (2 PILLS OF 400 MG AND 1 PILL OF 200 MG, THIS MORNING)
     Route: 065
     Dates: start: 20220426
  2. KEPPRA [Concomitant]
     Active Substance: LEVETIRACETAM
     Indication: Seizure
     Dosage: 1.500 MG
     Route: 065

REACTIONS (3)
  - Sturge-Weber syndrome [Unknown]
  - Glaucoma [Unknown]
  - Ill-defined disorder [Unknown]
